FAERS Safety Report 10026589 (Version 2)
Quarter: 2014Q2

REPORT INFORMATION
  Report Type: Spontaneous
  Country: US (occurrence: US)
  Receive Date: 20140321
  Receipt Date: 20140404
  Transmission Date: 20141212
  Serious: Yes (Hospitalization)
  Sender: FDA-Public Use
  Company Number: US-BIOGENIDEC-2014BI025911

PATIENT
  Sex: Female

DRUGS (2)
  1. TYSABRI [Suspect]
     Indication: MULTIPLE SCLEROSIS
     Route: 042
     Dates: start: 20061106
  2. AVONEX [Concomitant]
     Indication: MULTIPLE SCLEROSIS

REACTIONS (7)
  - Multiple sclerosis relapse [Unknown]
  - Memory impairment [Unknown]
  - Muscle spasms [Unknown]
  - Pain [Unknown]
  - Muscle disorder [Unknown]
  - Fatigue [Unknown]
  - Frustration [Unknown]
